FAERS Safety Report 10082333 (Version 5)
Quarter: 2015Q3

REPORT INFORMATION
  Report Type: Spontaneous
  Country: US (occurrence: US)
  Receive Date: 20140416
  Receipt Date: 20150928
  Transmission Date: 20151125
  Serious: No
  Sender: FDA-Public Use
  Company Number: US-009507513-1404USA007875

PATIENT
  Sex: Male

DRUGS (1)
  1. PROPECIA [Suspect]
     Active Substance: FINASTERIDE
     Indication: ALOPECIA
     Dosage: 1 MG, UNK
     Route: 048
     Dates: start: 2000, end: 201012

REACTIONS (32)
  - Erectile dysfunction [Not Recovered/Not Resolved]
  - Headache [Unknown]
  - Balance disorder [Unknown]
  - Intervertebral disc degeneration [Unknown]
  - Tinnitus [Unknown]
  - Hyperkeratosis [Unknown]
  - Influenza [Unknown]
  - Libido decreased [Unknown]
  - Adjustment disorder [Unknown]
  - Mountain sickness acute [Unknown]
  - Sensory level abnormal [Unknown]
  - Paranasal cyst [Unknown]
  - Chest pain [Unknown]
  - Sinus operation [Unknown]
  - Marital problem [Unknown]
  - Depression [Not Recovered/Not Resolved]
  - Acne [Unknown]
  - Visual acuity reduced [Unknown]
  - Fatigue [Unknown]
  - Cognitive disorder [Not Recovered/Not Resolved]
  - Splinter [Unknown]
  - Loss of libido [Not Recovered/Not Resolved]
  - Nasopharyngitis [Unknown]
  - Malaise [Unknown]
  - Weight increased [Unknown]
  - Anxiety [Not Recovered/Not Resolved]
  - Sexual dysfunction [Not Recovered/Not Resolved]
  - Back pain [Unknown]
  - Fibrous histiocytoma [Unknown]
  - Neck pain [Unknown]
  - Semen volume decreased [Unknown]
  - Haemangioma of skin [Unknown]

NARRATIVE: CASE EVENT DATE: 200009
